FAERS Safety Report 8337788-3 (Version None)
Quarter: 2012Q2

REPORT INFORMATION
  Report Type: 
  Country: None (occurrence: None)
  Receive Date: 20120504
  Receipt Date: 20120430
  Transmission Date: 20120825
  Serious: Yes (Other)
  Sender: FDA-Public Use
  Company Number: CA-GLAXOSMITHKLINE-A0973888A

PATIENT
  Sex: Male
  Weight: 91.4 kg

DRUGS (7)
  1. MORPHINE [Concomitant]
     Indication: BACK PAIN
     Route: 065
  2. ADVAIR DISKUS 100/50 [Suspect]
     Indication: CHRONIC OBSTRUCTIVE PULMONARY DISEASE
     Dosage: 1PUFF TWICE PER DAY
     Route: 055
     Dates: start: 20100101
  3. VENTOLIN [Concomitant]
     Dosage: 1PUFF TWICE PER DAY
     Route: 065
  4. ASPIRIN [Concomitant]
     Dosage: 80MG PER DAY
     Route: 065
  5. SPIRIVA [Concomitant]
     Route: 065
  6. ALBUTEROL [Concomitant]
     Dosage: 1PUFF AS REQUIRED
     Route: 065
  7. SIMVASTATIN [Concomitant]
     Dosage: 20MG PER DAY
     Route: 065

REACTIONS (5)
  - DYSPNOEA [None]
  - LOWER RESPIRATORY TRACT INFECTION [None]
  - PNEUMONIA [None]
  - WHEEZING [None]
  - CHEST PAIN [None]
